FAERS Safety Report 26113930 (Version 1)
Quarter: 2025Q4

REPORT INFORMATION
  Report Type: Spontaneous
  Country: EU (occurrence: EU)
  Receive Date: 20251202
  Receipt Date: 20251202
  Transmission Date: 20260118
  Serious: Yes (Other)
  Sender: MYLAN
  Company Number: EU-STADA-01495149

PATIENT
  Age: 72 Year
  Sex: Female

DRUGS (2)
  1. TRAMADOL [Interacting]
     Active Substance: TRAMADOL
     Indication: Post herpetic neuralgia
     Dosage: 300 MILLIGRAM, QD
  2. BUPRENORPHINE [Interacting]
     Active Substance: BUPRENORPHINE
     Indication: Post herpetic neuralgia
     Dosage: 35 MICROGRAM, QH

REACTIONS (3)
  - Dizziness [Unknown]
  - Confusional state [Unknown]
  - Drug interaction [Unknown]
